FAERS Safety Report 6781529-8 (Version None)
Quarter: 2010Q2

REPORT INFORMATION
  Report Type: 
  Country: None (occurrence: None)
  Receive Date: 20100621
  Receipt Date: 20100611
  Transmission Date: 20101027
  Serious: Yes (Other)
  Sender: FDA-Public Use
  Company Number: ES-ROCHE-709480

PATIENT
  Age: 59 Year
  Sex: Male
  Weight: 110 kg

DRUGS (8)
  1. FLUMAZENIL [Suspect]
     Indication: DRUG USE FOR UNKNOWN INDICATION
     Route: 065
  2. MIDAZOLAM HCL [Suspect]
     Indication: DRUG USE FOR UNKNOWN INDICATION
     Route: 065
  3. MIDAZOLAM HCL [Suspect]
     Route: 065
  4. REMIFENTANIL [Suspect]
     Indication: DRUG USE FOR UNKNOWN INDICATION
     Dosage: FORM: INFUSION, DOSE: 0.1UGKG-1MIN-1
     Route: 065
  5. REMIFENTANIL [Suspect]
     Dosage: DOSE: 0.05 UG KG-1 MIN-1
     Route: 065
  6. PROPOFOL [Suspect]
     Indication: DRUG USE FOR UNKNOWN INDICATION
     Dosage: DOSE: 1 MG KG-1 H-1, FORM: INFUSION
     Route: 065
  7. PROPOFOL [Suspect]
     Dosage: BOLUS, DOSE 50 MG TOTAL
     Route: 065
  8. NALOXONE [Suspect]
     Indication: DRUG USE FOR UNKNOWN INDICATION
     Route: 065

REACTIONS (5)
  - CARDIAC DISORDER [None]
  - DECEREBRATION [None]
  - HYPOXIA [None]
  - RESPIRATORY ARREST [None]
  - TACHYARRHYTHMIA [None]
